APPROVED DRUG PRODUCT: DANTROLENE SODIUM
Active Ingredient: DANTROLENE SODIUM
Strength: 20MG/VIAL
Dosage Form/Route: INJECTABLE;INJECTION
Application: A205239 | Product #001
Applicant: EUGIA PHARMA SPECIALITIES LTD
Approved: Feb 18, 2016 | RLD: No | RS: No | Type: DISCN